FAERS Safety Report 7950539-7 (Version None)
Quarter: 2011Q4

REPORT INFORMATION
  Report Type: 
  Country: None (occurrence: None)
  Receive Date: 20111130
  Receipt Date: 20111122
  Transmission Date: 20120403
  Serious: Yes (Other)
  Sender: FDA-Public Use
  Company Number: PHHY2011US102430

PATIENT
  Age: 69 Year
  Sex: Male

DRUGS (1)
  1. AMIODARONE HCL [Suspect]
     Dosage: 200 MG, BID

REACTIONS (6)
  - PERICARDIAL EFFUSION [None]
  - FATIGUE [None]
  - CARDIAC TAMPONADE [None]
  - DYSPNOEA EXERTIONAL [None]
  - HYPOTHYROIDISM [None]
  - CARDIOMEGALY [None]
